FAERS Safety Report 17884811 (Version 6)
Quarter: 2021Q3

REPORT INFORMATION
  Report Type: Spontaneous
  Country: US (occurrence: US)
  Receive Date: 20200611
  Receipt Date: 20210723
  Transmission Date: 20211014
  Serious: No
  Sender: FDA-Public Use
  Company Number: US-PFIZER INC-2020223998

PATIENT
  Age: 14 Year
  Sex: Male
  Weight: 66.9 kg

DRUGS (2)
  1. GENOTROPIN [Suspect]
     Active Substance: SOMATROPIN
     Dosage: 3.0 MG, 1X/DAY (3.0MG BY INJECTION ONCE A DAY)
  2. GENOTROPIN [Suspect]
     Active Substance: SOMATROPIN
     Indication: PRADER-WILLI SYNDROME
     Dosage: 3.5 MG, DAILY (ADMINISTERED DAILY ABDOMEN OR LEGS)

REACTIONS (4)
  - Wrong technique in device usage process [Unknown]
  - Drug dose omission by device [Unknown]
  - Product prescribing error [Unknown]
  - Device issue [Unknown]

NARRATIVE: CASE EVENT DATE: 20200605
